FAERS Safety Report 4501012-X (Version None)
Quarter: 2004Q4

REPORT INFORMATION
  Report Type: 
  Country: None (occurrence: None)
  Receive Date: 20041115
  Receipt Date: 20041108
  Transmission Date: 20050328
  Serious: Yes (Death)
  Sender: FDA-Public Use
  Company Number: KR-GLAXOSMITHKLINE-B0350950A

PATIENT
  Age: 55 Year
  Sex: Male

DRUGS (9)
  1. TOPOTECAN [Suspect]
     Indication: SMALL CELL LUNG CANCER STAGE UNSPECIFIED
     Dosage: 1.5MGM2 PER DAY
     Dates: start: 20030212, end: 20030216
  2. TOPOTECAN [Suspect]
     Dosage: 1.5MGM2 PER DAY
     Dates: start: 20030429, end: 20030503
  3. CARBOPLATIN [Concomitant]
     Indication: CHEMOTHERAPY
  4. ETOPOSIDE [Concomitant]
     Indication: CHEMOTHERAPY
  5. CEFTEZOLE SODIUM [Concomitant]
  6. MICRONOMICIN [Concomitant]
  7. ONDANSETRON [Concomitant]
  8. DEXAMETHASONE [Concomitant]
  9. FUROSEMIDE [Concomitant]

REACTIONS (2)
  - RESPIRATORY FAILURE [None]
  - SEPSIS [None]
